FAERS Safety Report 8954213 (Version 1)
Quarter: 2012Q4

REPORT INFORMATION
  Report Type: 
  Country: GB (occurrence: GB)
  Receive Date: 20121207
  Receipt Date: 20121207
  Transmission Date: 20130627
  Serious: Yes (Other)
  Sender: FDA-Public Use
  Company Number: GB-WATSON-2012-21579

PATIENT
  Age: 74 Year
  Sex: Female

DRUGS (6)
  1. ALLOPURINOL (UNKNOWN) [Suspect]
     Indication: GOUT
     Dosage: unknown
     Route: 065
  2. GLICLAZIDE (UNKNOWN) [Suspect]
     Indication: ANXIETY
     Dosage: unknown
     Route: 065
  3. SIMVASTATIN (UNKNOWN) [Suspect]
     Indication: BLOOD CHOLESTEROL INCREASED
     Dosage: unknown
     Route: 065
     Dates: end: 20121103
  4. FUROSEMIDE (UNKNOWN) [Suspect]
     Indication: FLUID RETENTION
     Dosage: unknown
     Route: 065
  5. LISINOPRIL (UNKNOWN) [Suspect]
     Indication: BLOOD PRESSURE
     Dosage: unknown
     Route: 065
  6. WARFARIN [Suspect]
     Indication: COAGULATION TIME ABNORMAL
     Dosage: 5 mg, daily
     Route: 065

REACTIONS (3)
  - Face oedema [Not Recovered/Not Resolved]
  - Hot flush [Not Recovered/Not Resolved]
  - Malaise [Not Recovered/Not Resolved]
